FAERS Safety Report 7337788-6 (Version None)
Quarter: 2011Q1

REPORT INFORMATION
  Report Type: 
  Country: None (occurrence: None)
  Receive Date: 20110308
  Receipt Date: 20110224
  Transmission Date: 20110831
  Serious: Yes (Other)
  Sender: FDA-Public Use
  Company Number: FI-ROCHE-698603

PATIENT
  Sex: Female

DRUGS (1)
  1. ISOTRETINOIN [Suspect]
     Indication: ACNE
     Dosage: FREQUENCY: 20 MG AND 40 MG EVERY OTHER DAY
     Route: 048
     Dates: start: 20090602, end: 20091101

REACTIONS (2)
  - ARTHRALGIA [None]
  - JOINT SWELLING [None]
